FAERS Safety Report 6185198-X (Version None)
Quarter: 2009Q2

REPORT INFORMATION
  Report Type: 
  Country: None (occurrence: None)
  Receive Date: 20090511
  Receipt Date: 20090429
  Transmission Date: 20091009
  Serious: Yes (Hospitalization)
  Sender: FDA-Public Use
  Company Number: US-BIOGENIDEC-2008BI024310

PATIENT
  Age: 56 Year
  Sex: Female

DRUGS (4)
  1. AVONEX [Suspect]
     Indication: MULTIPLE SCLEROSIS
     Route: 030
     Dates: start: 20070326, end: 20080301
  2. AVONEX [Suspect]
     Route: 030
     Dates: start: 19970101
  3. AVONEX [Suspect]
     Route: 030
  4. AVONEX [Suspect]
     Route: 030
     Dates: start: 20080609

REACTIONS (4)
  - CORONARY ARTERY DISEASE [None]
  - DEVICE INEFFECTIVE [None]
  - HYPERLIPIDAEMIA [None]
  - HYPERTENSION [None]
